FAERS Safety Report 6788068-9 (Version None)
Quarter: 2010Q2

REPORT INFORMATION
  Report Type: 
  Country: None (occurrence: None)
  Receive Date: 20100623
  Receipt Date: 20080324
  Transmission Date: 20101027
  Serious: No
  Sender: FDA-Public Use
  Company Number: US-PFIZER INC-2007074092

PATIENT
  Sex: Female
  Weight: 68.04 kg

DRUGS (2)
  1. XALATAN [Suspect]
     Indication: GLAUCOMA
     Route: 047
  2. MICARDIS HCT [Concomitant]
     Indication: BLOOD PRESSURE ABNORMAL

REACTIONS (2)
  - EYE IRRITATION [None]
  - INCORRECT STORAGE OF DRUG [None]
